FAERS Safety Report 6043500-3 (Version None)
Quarter: 2009Q1

REPORT INFORMATION
  Report Type: 
  Country: None (occurrence: None)
  Receive Date: 20090115
  Receipt Date: 20090115
  Transmission Date: 20090719
  Serious: No
  Sender: FDA-Public Use
  Company Number: None

PATIENT
  Sex: Female
  Weight: 27.2158 kg

DRUGS (2)
  1. SINGULAIR [Suspect]
     Indication: ASTHMA
     Dosage: 1 PILL ONCE DAILY PO
     Route: 048
     Dates: start: 20000301, end: 20080301
  2. SINGULAIR [Suspect]
     Indication: MULTIPLE ALLERGIES
     Dosage: 1 PILL ONCE DAILY PO
     Route: 048
     Dates: start: 20000301, end: 20080301

REACTIONS (4)
  - ANGER [None]
  - DEPRESSED MOOD [None]
  - MOOD SWINGS [None]
  - THINKING ABNORMAL [None]
